FAERS Safety Report 18663461 (Version 1)
Quarter: 2020Q4

REPORT INFORMATION
  Report Type: Spontaneous
  Country: CN (occurrence: CN)
  Receive Date: 20201224
  Receipt Date: 20201224
  Transmission Date: 20210114
  Serious: Yes (Other)
  Sender: FDA-Public Use
  Company Number: CN-ASTRAZENECA-2020SF70232

PATIENT
  Age: 52 Year
  Sex: Female
  Weight: 58 kg

DRUGS (4)
  1. FASLODEX [Suspect]
     Active Substance: FULVESTRANT
     Indication: BREAST CANCER FEMALE
     Dosage: 0.25 G, ONCE EVERY 8 DAYS
     Route: 030
     Dates: start: 20200724
  2. FASLODEX [Suspect]
     Active Substance: FULVESTRANT
     Indication: BREAST CANCER FEMALE
     Route: 030
     Dates: start: 20200626
  3. FASLODEX [Suspect]
     Active Substance: FULVESTRANT
     Indication: OESTROGEN THERAPY
     Route: 030
     Dates: start: 20200626
  4. FASLODEX [Suspect]
     Active Substance: FULVESTRANT
     Indication: OESTROGEN THERAPY
     Dosage: 0.25 G, ONCE EVERY 8 DAYS
     Route: 030
     Dates: start: 20200724

REACTIONS (4)
  - Cold sweat [Recovering/Resolving]
  - Vomiting [Recovering/Resolving]
  - Nausea [Recovering/Resolving]
  - Hypoaesthesia oral [Recovering/Resolving]

NARRATIVE: CASE EVENT DATE: 20200724
